FAERS Safety Report 25655251 (Version 1)
Quarter: 2025Q3

REPORT INFORMATION
  Report Type: Spontaneous
  Country: IL (occurrence: IL)
  Receive Date: 20250807
  Receipt Date: 20250807
  Transmission Date: 20251021
  Serious: Yes (Other)
  Sender: TEVA
  Company Number: IL-TEVA-VS-3358672

PATIENT
  Age: 53 Year

DRUGS (1)
  1. TAMOXIFEN [Suspect]
     Active Substance: TAMOXIFEN
     Indication: Product used for unknown indication
     Route: 065
     Dates: start: 20210706

REACTIONS (3)
  - Pharyngeal oedema [Unknown]
  - Dysphagia [Unknown]
  - Choking sensation [Unknown]
